FAERS Safety Report 4316819-1 (Version None)
Quarter: 2004Q1

REPORT INFORMATION
  Report Type: 
  Country: None (occurrence: None)
  Receive Date: 20040311
  Receipt Date: 20040301
  Transmission Date: 20041129
  Serious: Yes (Hospitalization)
  Sender: FDA-Public Use
  Company Number: ES-JNJFOC-20040300687

PATIENT
  Age: 54 Year
  Sex: Male

DRUGS (4)
  1. REMICADE [Suspect]
     Indication: PSORIATIC ARTHROPATHY
     Dosage: 3 MG/KG, 1 IN 8 WEEK, INTRAVENOUS
     Route: 042
     Dates: start: 20020301, end: 20020807
  2. METHOTREXATE [Concomitant]
  3. INDOMETHACIN [Concomitant]
  4. FOLIC ACID [Concomitant]

REACTIONS (2)
  - GASTRIC ULCER [None]
  - MELAENA [None]
